FAERS Safety Report 7568524-6 (Version None)
Quarter: 2011Q2

REPORT INFORMATION
  Report Type: 
  Country: None (occurrence: None)
  Receive Date: 20110623
  Receipt Date: 20110620
  Transmission Date: 20111010
  Serious: Yes (Hospitalization, Other)
  Sender: FDA-Public Use
  Company Number: US-PFIZER INC-2011136444

PATIENT
  Sex: Female
  Weight: 57.143 kg

DRUGS (7)
  1. WARFARIN SODIUM [Suspect]
     Dosage: UNK
     Route: 048
  2. WARFARIN SODIUM [Suspect]
     Dosage: UNK
     Route: 048
     Dates: start: 20110601
  3. SOTALOL HCL [Suspect]
     Dosage: UNK
     Route: 048
  4. DRONEDARONE HCL [Suspect]
     Dosage: UNK
  5. PRADAXA [Suspect]
     Indication: ATRIAL FIBRILLATION
     Dosage: UNK
     Route: 048
     Dates: start: 20091201, end: 20110501
  6. AMIODARONE HCL [Suspect]
     Indication: ATRIAL FIBRILLATION
     Dosage: 200 MG, 2X/DAY
     Route: 048
     Dates: start: 20091201
  7. AMIODARONE HCL [Suspect]
     Dosage: 200 MG, 1X/DAY
     Route: 048
     Dates: end: 20110501

REACTIONS (6)
  - DYSPNOEA [None]
  - LARGE INTESTINAL HAEMORRHAGE [None]
  - PAIN [None]
  - HIP FRACTURE [None]
  - PULMONARY TOXICITY [None]
  - BLADDER DISORDER [None]
